FAERS Safety Report 22270117 (Version 1)
Quarter: 2023Q2

REPORT INFORMATION
  Report Type: Spontaneous
  Country: US (occurrence: None)
  Receive Date: 20230428
  Receipt Date: 20230428
  Transmission Date: 20230722
  Serious: No
  Sender: FDA-Public Use
  Company Number: None

PATIENT
  Age: 59 Year
  Sex: Male
  Weight: 90 kg

DRUGS (1)
  1. TEPEZZA [Suspect]
     Active Substance: TEPROTUMUMAB-TRBW
     Indication: Endocrine ophthalmopathy
     Dosage: 1818 MG EVERY 3 WEEKS INTRAVENOUS
     Route: 042
     Dates: start: 20230118

REACTIONS (12)
  - Tinnitus [None]
  - Ear discomfort [None]
  - Dry skin [None]
  - Fatigue [None]
  - Infusion related reaction [None]
  - Weight increased [None]
  - Deafness [None]
  - Therapy interrupted [None]
  - Hyperacusis [None]
  - Ototoxicity [None]
  - Tinnitus [None]
  - Eustachian tube dysfunction [None]

NARRATIVE: CASE EVENT DATE: 20230329
